FAERS Safety Report 10946385 (Version 2)
Quarter: 2015Q3

REPORT INFORMATION
  Report Type: Spontaneous
  Country: JP (occurrence: JP)
  Receive Date: 20150323
  Receipt Date: 20150721
  Transmission Date: 20151125
  Serious: Yes (Hospitalization)
  Sender: FDA-Public Use
  Company Number: JP-SA-2015SA032338

PATIENT
  Age: 64 Year
  Sex: Male
  Weight: 55 kg

DRUGS (31)
  1. 5-FU [Suspect]
     Active Substance: FLUOROURACIL
     Indication: COLON CANCER
     Dosage: FREQUENCY:ONCE IN 2 DAYS
     Route: 041
     Dates: start: 20141217, end: 20141217
  2. ELPLAT [Suspect]
     Active Substance: OXALIPLATIN
     Indication: COLON CANCER
     Route: 041
     Dates: start: 20141104, end: 20141104
  3. ELPLAT [Suspect]
     Active Substance: OXALIPLATIN
     Indication: COLON CANCER
     Route: 041
     Dates: start: 20141118, end: 20141118
  4. 5-FU [Suspect]
     Active Substance: FLUOROURACIL
     Indication: COLON CANCER
     Route: 040
     Dates: start: 20141007, end: 20141007
  5. 5-FU [Suspect]
     Active Substance: FLUOROURACIL
     Indication: COLON CANCER
     Route: 040
     Dates: start: 20141104, end: 20141104
  6. HIRUDOID [Concomitant]
     Active Substance: GLYCOSAMINOGLYCANS
     Dates: start: 20141010, end: 20141201
  7. LOCOID [Concomitant]
     Active Substance: HYDROCORTISONE BUTYRATE
     Dates: start: 20141104, end: 20141201
  8. ELPLAT [Suspect]
     Active Substance: OXALIPLATIN
     Indication: COLON CANCER
     Route: 041
     Dates: start: 20141118, end: 20141118
  9. 5-FU [Suspect]
     Active Substance: FLUOROURACIL
     Indication: COLON CANCER
     Dosage: ONCE IN 2 DAYS
     Route: 041
     Dates: start: 20141007, end: 20141007
  10. ELPLAT [Suspect]
     Active Substance: OXALIPLATIN
     Indication: COLON CANCER
     Route: 041
     Dates: start: 20141007, end: 20141007
  11. ELPLAT [Suspect]
     Active Substance: OXALIPLATIN
     Indication: COLON CANCER
     Route: 041
     Dates: start: 20141021, end: 20141021
  12. 5-FU [Suspect]
     Active Substance: FLUOROURACIL
     Indication: COLON CANCER
     Dosage: FREQUENCY:ONCE IN 2 DAYS
     Route: 041
     Dates: start: 20141118, end: 20141118
  13. 5-FU [Suspect]
     Active Substance: FLUOROURACIL
     Indication: COLON CANCER
     Route: 040
     Dates: start: 20141118, end: 20141118
  14. 5-FU [Suspect]
     Active Substance: FLUOROURACIL
     Indication: COLON CANCER
     Dosage: FREQUENCY:ONCE IN 2 DAYS
     Route: 041
     Dates: start: 20150113, end: 20150113
  15. 5-FU [Suspect]
     Active Substance: FLUOROURACIL
     Indication: COLON CANCER
     Dosage: FREQUENCY:ONCE IN 2 DAYS
     Route: 041
     Dates: start: 20141021, end: 20141021
  16. IRINOTECAN HYDROCHLORIDE. [Concomitant]
     Active Substance: IRINOTECAN HYDROCHLORIDE
     Dates: start: 20141217, end: 20150127
  17. GASMOTIN [Concomitant]
     Active Substance: MOSAPRIDE CITRATE
     Dates: start: 20140707
  18. GLYCYRON [Concomitant]
     Active Substance: AMMONIUM GLYCYRRHIZATE\GLYCINE\METHIONINE
     Dates: start: 20140820
  19. ELPLAT [Suspect]
     Active Substance: OXALIPLATIN
     Indication: COLON CANCER
     Route: 041
     Dates: start: 20141104, end: 20141104
  20. 5-FU [Suspect]
     Active Substance: FLUOROURACIL
     Indication: COLON CANCER
     Dosage: FREQUENCY:ONCE IN 2 DAYS
     Route: 041
     Dates: start: 20141104, end: 20141104
  21. 5-FU [Suspect]
     Active Substance: FLUOROURACIL
     Indication: COLON CANCER
     Route: 040
     Dates: start: 20141217, end: 20141217
  22. 5-FU [Suspect]
     Active Substance: FLUOROURACIL
     Indication: COLON CANCER
     Dosage: FREQUENCY:ONCE IN 2 DAYS
     Route: 041
     Dates: start: 20150113, end: 20150113
  23. CALCIUM LEVOFOLINATE [Concomitant]
     Active Substance: LEVOLEUCOVORIN CALCIUM
     Dates: start: 20141007, end: 20150127
  24. VECTIBIX [Concomitant]
     Active Substance: PANITUMUMAB
     Dates: start: 20141007, end: 20141118
  25. AVASTIN [Concomitant]
     Active Substance: BEVACIZUMAB
     Dates: start: 20141217, end: 20150127
  26. MINOMYCIN [Concomitant]
     Active Substance: MINOCYCLINE HYDROCHLORIDE
     Dates: start: 20141021, end: 20141201
  27. 5-FU [Suspect]
     Active Substance: FLUOROURACIL
     Indication: COLON CANCER
     Route: 040
     Dates: start: 20141021, end: 20141021
  28. GASTER [Concomitant]
     Active Substance: FAMOTIDINE
  29. ELPLAT [Suspect]
     Active Substance: OXALIPLATIN
     Indication: COLON CANCER
     Route: 041
     Dates: start: 20141007, end: 20141007
  30. ELPLAT [Suspect]
     Active Substance: OXALIPLATIN
     Indication: COLON CANCER
     Route: 041
     Dates: start: 20141021, end: 20141021
  31. BARACLUDE [Concomitant]
     Active Substance: ENTECAVIR
     Dates: start: 20140930

REACTIONS (4)
  - Miller Fisher syndrome [Recovered/Resolved]
  - Cheilitis [Unknown]
  - Alopecia [Unknown]
  - Dysgeusia [Unknown]

NARRATIVE: CASE EVENT DATE: 20141118
